FAERS Safety Report 4407273-X (Version None)
Quarter: 2004Q3

REPORT INFORMATION
  Report Type: 
  Country: None (occurrence: None)
  Receive Date: 20040721
  Receipt Date: 20040707
  Transmission Date: 20050211
  Serious: Yes (Hospitalization)
  Sender: FDA-Public Use
  Company Number: USA030228183

PATIENT
  Age: 61 Year
  Sex: Female
  Weight: 67 kg

DRUGS (14)
  1. FORTEO [Suspect]
     Indication: OSTEOPOROSIS
     Dosage: 20 UG/DAY
     Dates: start: 20021230
  2. CALCIUM [Concomitant]
  3. COUMADIN (EARFARIN SODIUM) [Concomitant]
  4. NATURES OWN REFLUZ FREE OMEGA-3 FISH OIL (OMEGA-3 MARINE TRIGLYCERIDES [Concomitant]
  5. FOLIC ACID [Concomitant]
  6. FOSAMAX [Concomitant]
  7. LASIX *FUROSEMIDE0 [Concomitant]
  8. MULTI-VITAMIN [Concomitant]
  9. PLAVIX [Concomitant]
  10. PREDNISONE [Concomitant]
  11. SPIRONOLACTONE [Concomitant]
  12. VERAPAMIL [Concomitant]
  13. 13 VITAMIN C [Concomitant]
  14. ZETIA [Concomitant]

REACTIONS (13)
  - ABDOMINAL ADHESIONS [None]
  - ARTHRALGIA [None]
  - CONDITION AGGRAVATED [None]
  - FATIGUE [None]
  - GASTROINTESTINAL HAEMORRHAGE [None]
  - HEADACHE [None]
  - IATROGENIC INJURY [None]
  - INSOMNIA [None]
  - INTESTINAL OBSTRUCTION [None]
  - MEDICAL DEVICE COMPLICATION [None]
  - PAIN [None]
  - PHARMACEUTICAL PRODUCT COMPLAINT [None]
  - ROAD TRAFFIC ACCIDENT [None]
